FAERS Safety Report 14575110 (Version 1)
Quarter: 2018Q1

REPORT INFORMATION
  Report Type: Spontaneous
  Country: US (occurrence: US)
  Receive Date: 20180227
  Receipt Date: 20180227
  Transmission Date: 20180509
  Serious: No
  Sender: FDA-Public Use
  Company Number: US-ROCHE-2016066

PATIENT
  Age: 10 Year
  Sex: Female
  Weight: 74 kg

DRUGS (2)
  1. XOLAIR [Suspect]
     Active Substance: OMALIZUMAB
     Indication: URTICARIA CHRONIC
     Dosage: ONGOING: NO
     Route: 058
     Dates: start: 20171006
  2. PREDNISONE. [Concomitant]
     Active Substance: PREDNISONE
     Dosage: ONGOING: NO
     Route: 065
     Dates: start: 20171006

REACTIONS (2)
  - Cough [Recovering/Resolving]
  - Dyspnoea [Unknown]

NARRATIVE: CASE EVENT DATE: 20171006
